FAERS Safety Report 21087645 (Version 1)
Quarter: 2022Q3

REPORT INFORMATION
  Report Type: Spontaneous
  Country: US (occurrence: None)
  Receive Date: 20220714
  Receipt Date: 20220714
  Transmission Date: 20221027
  Serious: Yes (Death)
  Sender: FDA-Public Use
  Company Number: None

PATIENT
  Age: 63 Year
  Sex: Male
  Weight: 124.6 kg

DRUGS (3)
  1. ORITAVANCIN [Suspect]
     Active Substance: ORITAVANCIN
     Indication: Staphylococcal sepsis
     Dosage: FREQUENCY : WEEKLY;?
     Route: 042
  2. EPINEPHRINE [Concomitant]
     Active Substance: EPINEPHRINE
     Dates: start: 20220708, end: 20220708
  3. SODIUM BICARBONATE [Concomitant]
     Active Substance: SODIUM BICARBONATE
     Dates: start: 20220708, end: 20220708

REACTIONS (1)
  - Cardiac arrest [None]

NARRATIVE: CASE EVENT DATE: 20220708
